FAERS Safety Report 5423034-7 (Version None)
Quarter: 2007Q3

REPORT INFORMATION
  Report Type: 
  Country: None (occurrence: None)
  Receive Date: 20070822
  Receipt Date: 20070810
  Transmission Date: 20080115
  Serious: Yes (Hospitalization)
  Sender: FDA-Public Use
  Company Number: FR-PFIZER INC-2007067280

PATIENT
  Sex: Female

DRUGS (2)
  1. RELPAX [Suspect]
     Route: 048
  2. IBUPROFEN TABLETS [Suspect]
     Dosage: TEXT:^2 DF^
     Route: 048

REACTIONS (2)
  - CONDITION AGGRAVATED [None]
  - MIGRAINE [None]
